FAERS Safety Report 8143294-1 (Version None)
Quarter: 2012Q1

REPORT INFORMATION
  Report Type: 
  Country: None (occurrence: None)
  Receive Date: 20120217
  Receipt Date: 20120210
  Transmission Date: 20120608
  Serious: Yes (Other)
  Sender: FDA-Public Use
  Company Number: US-BAYER-2011-050076

PATIENT
  Sex: Female
  Weight: 90 kg

DRUGS (6)
  1. EFFEXOR [Concomitant]
     Dosage: 75 MG, UNK
     Route: 048
  2. DILANTIN [Concomitant]
  3. YAZ [Suspect]
     Indication: CONTRACEPTION
     Dosage: UNK
     Dates: start: 20090318, end: 20100601
  4. FLOVENT [Concomitant]
     Dosage: UNK
  5. DICLOXACILLIN [Concomitant]
     Dosage: 250 MG, UNK
     Route: 048
  6. IBUPROFEN [Concomitant]
     Indication: HEADACHE
     Route: 048

REACTIONS (5)
  - CEREBROVASCULAR ACCIDENT [None]
  - ANHEDONIA [None]
  - INJURY [None]
  - PAIN [None]
  - ANXIETY [None]
